FAERS Safety Report 8984347 (Version 2)
Quarter: 2013Q2

REPORT INFORMATION
  Report Type: Spontaneous
  Country: US (occurrence: None)
  Receive Date: 20120508
  Receipt Date: 20120709
  Transmission Date: 20140414
  Serious: No
  Sender: FDA-Public Use
  Company Number: 2012HGS-003287

PATIENT
  Age: 38 Year
  Sex: Female
  Weight: 69.4 kg

DRUGS (9)
  1. BENLYSTA [Suspect]
     Indication: SYSTEMIC LUPUS ERYTHEMATOSUS
     Route: 041
     Dates: start: 20120209, end: 20120209
  2. LEFLUNOMIDE (LEFLUNOMIDE) (LEFLUNOMIDE) [Concomitant]
  3. DEPO-MEDROL (METHYLPREDNISOLONE ACETATE) (METHYLPREDNISOLONE ACETATE) [Concomitant]
  4. SAVELLA (MILNACIPRAN HYDROCHLORIDE) (MILNACIPRAN HYDROCHLORIDE) [Concomitant]
  5. FOLIC ACID (FOLIC ACID) (FOLIC ACID) [Concomitant]
  6. SYNTHROID (LEVOTHYROXINE SODIUM) (LEVOTHYROXINE SODIUM) [Concomitant]
  7. NEXIUM (ESOMEPRAZOLE MAGNESIUM) (ESOMEPRAZOLE MAGNESIUM) [Concomitant]
  8. HYDROCODONE APAP (VICODIN) (PARACETAMOL, HYDROCODONE BITARTRATE) [Concomitant]
  9. TORADOL (KETOROLAC TROMETHAMINE) (KETOROLAC TROMETHAMINE) [Concomitant]

REACTIONS (6)
  - Hypersensitivity [None]
  - Dyspnoea [None]
  - Wheezing [None]
  - Rash [None]
  - Throat tightness [None]
  - Pruritus [None]
